FAERS Safety Report 20376429 (Version 1)
Quarter: 2022Q1

REPORT INFORMATION
  Report Type: Other
  Country: US (occurrence: None)
  Receive Date: 20220125
  Receipt Date: 20220125
  Transmission Date: 20220423
  Serious: Yes (Hospitalization, Other)
  Sender: FDA-Public Use
  Company Number: US-ROCHE-3010323

PATIENT

DRUGS (1)
  1. CAPECITABINE [Suspect]
     Active Substance: CAPECITABINE
     Indication: Neoplasm malignant
     Route: 065

REACTIONS (4)
  - Enteritis [Recovered/Resolved]
  - Hypokalaemia [Unknown]
  - Hypoalbuminaemia [Unknown]
  - Palmar-plantar erythrodysaesthesia syndrome [Unknown]
